FAERS Safety Report 5159989-8 (Version None)
Quarter: 2006Q4

REPORT INFORMATION
  Report Type: 
  Country: None (occurrence: None)
  Receive Date: 20061129
  Receipt Date: 20060515
  Transmission Date: 20070319
  Serious: No
  Sender: FDA-Public Use
  Company Number: 2006-01906

PATIENT
  Age: 53 Year
  Sex: Male

DRUGS (4)
  1. BUPROPION HCL [Suspect]
     Indication: DEPRESSION
     Dosage: 150MG PER DAY
     Route: 048
     Dates: start: 20060413, end: 20060511
  2. METFORMIN [Concomitant]
  3. GLIPIZIDE [Concomitant]
  4. NOVOLOG [Concomitant]

REACTIONS (3)
  - DIARRHOEA [None]
  - PHARMACEUTICAL PRODUCT COMPLAINT [None]
  - STOMACH DISCOMFORT [None]
